FAERS Safety Report 5578723-0 (Version None)
Quarter: 2007Q4

REPORT INFORMATION
  Report Type: 
  Country: None (occurrence: None)
  Receive Date: 20071227
  Receipt Date: 20071211
  Transmission Date: 20080405
  Serious: Yes (Hospitalization)
  Sender: FDA-Public Use
  Company Number: 2007EU002747

PATIENT
  Age: 57 Year
  Sex: Female

DRUGS (3)
  1. TACROLIMUS [Suspect]
     Indication: RENAL TRANSPLANT
     Dosage: 4.5 MG, /D, ORAL
     Route: 048
     Dates: start: 20051225
  2. MYFORTIC [Suspect]
     Indication: RENAL TRANSPLANT
     Dosage: D/, ORAL
     Route: 048
     Dates: start: 20051225, end: 20060601
  3. VORTICOSTEROIDS [Suspect]
     Indication: RENAL TRANSPLANT
     Dosage: D/, ORAL
     Route: 048
     Dates: start: 20051225, end: 20060801

REACTIONS (8)
  - CYTOMEGALOVIRUS INFECTION [None]
  - GASTROINTESTINAL DISORDER [None]
  - HYPERKALAEMIA [None]
  - HYPERTENSION [None]
  - LUNG CYST BENIGN [None]
  - LYMPHOMA [None]
  - SCHAMBERG'S DISEASE [None]
  - SKIN HYPERPIGMENTATION [None]
